FAERS Safety Report 11780399 (Version 1)
Quarter: 2015Q4

REPORT INFORMATION
  Report Type: Spontaneous
  Country: US (occurrence: US)
  Receive Date: 20151126
  Receipt Date: 20151126
  Transmission Date: 20160305
  Serious: No
  Sender: FDA-Public Use
  Company Number: US-JNJFOC-20151013427

PATIENT
  Age: 70 Year
  Sex: Female
  Weight: 46.27 kg

DRUGS (3)
  1. TEA [Concomitant]
     Active Substance: TEA LEAF
     Indication: PHYTOTHERAPY
     Route: 065
  2. MOTRIN IB [Suspect]
     Active Substance: IBUPROFEN
     Route: 048
  3. MOTRIN IB [Suspect]
     Active Substance: IBUPROFEN
     Indication: ARTHRALGIA
     Route: 048
     Dates: start: 20151015, end: 20151015

REACTIONS (2)
  - Expired product administered [Unknown]
  - Drug dispensing error [Unknown]
